FAERS Safety Report 7450685-0 (Version None)
Quarter: 2011Q2

REPORT INFORMATION
  Report Type: 
  Country: None (occurrence: None)
  Receive Date: 20110429
  Receipt Date: 20110429
  Transmission Date: 20111010
  Serious: Yes (Other)
  Sender: FDA-Public Use
  Company Number: None

PATIENT
  Age: 57 Year
  Sex: Female
  Weight: 53.0709 kg

DRUGS (2)
  1. METOCLOPRAMIDE [Suspect]
     Indication: ERUCTATION
     Dosage: 10 MG ONLY TOOK 1 TABLET
     Dates: start: 20110330
  2. METOCLOPRAMIDE [Suspect]
     Indication: HICCUPS
     Dosage: 10 MG ONLY TOOK 1 TABLET
     Dates: start: 20110330

REACTIONS (5)
  - DYSTONIA [None]
  - HYPOAESTHESIA ORAL [None]
  - TRISMUS [None]
  - SPEECH DISORDER [None]
  - HYPERSENSITIVITY [None]
